FAERS Safety Report 6200055-8 (Version None)
Quarter: 2009Q2

REPORT INFORMATION
  Report Type: 
  Country: None (occurrence: None)
  Receive Date: 20090522
  Receipt Date: 20090518
  Transmission Date: 20091009
  Serious: Yes (Hospitalization)
  Sender: FDA-Public Use
  Company Number: FR-AMGEN-UK245469

PATIENT
  Sex: Male

DRUGS (5)
  1. NEULASTA [Suspect]
     Indication: CHEMOTHERAPY
     Route: 058
     Dates: start: 20070816, end: 20070816
  2. DENOSUMAB - BLINDED [Suspect]
     Indication: PROSTATE CANCER
     Route: 058
     Dates: start: 20060914
  3. PLAVIX [Concomitant]
     Route: 048
     Dates: start: 20020101
  4. ALPRAZOLAM [Concomitant]
     Route: 048
     Dates: start: 20030101
  5. IXPRIM [Concomitant]
     Route: 048

REACTIONS (1)
  - LUNG INFECTION [None]
